FAERS Safety Report 4724495-9 (Version None)
Quarter: 2005Q3

REPORT INFORMATION
  Report Type: 
  Country: None (occurrence: None)
  Receive Date: 20050721
  Receipt Date: 20050708
  Transmission Date: 20060218
  Serious: Yes (Hospitalization)
  Sender: FDA-Public Use
  Company Number: 2005089844

PATIENT
  Age: 51 Year
  Sex: Male
  Weight: 80 kg

DRUGS (4)
  1. XANAX XR [Suspect]
     Indication: ANXIETY
     Dosage: 3 MG (UNKNOWN) ORAL
     Route: 048
     Dates: start: 20050512, end: 20050601
  2. XANAX XR [Suspect]
     Indication: POST-TRAUMATIC STRESS DISORDER
     Dosage: 3 MG (UNKNOWN) ORAL
     Route: 048
     Dates: start: 20050512, end: 20050601
  3. FLUVOXAMINE MALEATE [Suspect]
     Indication: DEPRESSION
     Dosage: 50 MG (UNKNOWN); ORAL
     Route: 048
     Dates: start: 20050512
  4. FLUVOXAMINE MALEATE [Suspect]
     Indication: POST-TRAUMATIC STRESS DISORDER
     Dosage: 50 MG (UNKNOWN); ORAL
     Route: 048
     Dates: start: 20050512

REACTIONS (9)
  - CATHETER RELATED COMPLICATION [None]
  - CHILLS [None]
  - LEUKOCYTOSIS [None]
  - MICTURITION URGENCY [None]
  - NOCTURIA [None]
  - PAIN [None]
  - PYREXIA [None]
  - URINARY RETENTION [None]
  - VESICAL TENESMUS [None]
